FAERS Safety Report 5028624-1 (Version None)
Quarter: 2006Q2

REPORT INFORMATION
  Report Type: 
  Country: None (occurrence: None)
  Receive Date: 20060619
  Receipt Date: 20060608
  Transmission Date: 20061013
  Serious: Yes (Other)
  Sender: FDA-Public Use
  Company Number: PHHO2006MX09524

PATIENT
  Age: 76 Year
  Sex: Female

DRUGS (2)
  1. ZINTREPID [Concomitant]
     Route: 048
  2. CO-DIOVAN [Suspect]
     Indication: HYPERTENSION
     Dosage: 160/25 MG, DAILY
     Route: 048
     Dates: start: 20060501

REACTIONS (2)
  - DISCOMFORT [None]
  - HYPOTENSION [None]
